FAERS Safety Report 7677566-1 (Version None)
Quarter: 2011Q3

REPORT INFORMATION
  Report Type: 
  Country: None (occurrence: None)
  Receive Date: 20110811
  Receipt Date: 20110811
  Transmission Date: 20111222
  Serious: Yes (Life-Threatening)
  Sender: FDA-Public Use
  Company Number: None

PATIENT
  Age: 64 Year
  Sex: Male
  Weight: 130.18 kg

DRUGS (9)
  1. DECADRON [Concomitant]
  2. NAPROXEN (ALEVE) [Concomitant]
  3. CALCIUM W D [Concomitant]
  4. ELOXATIN [Suspect]
     Indication: RECTAL CANCER
     Dosage: 170MG
     Route: 041
     Dates: start: 20110706, end: 20110720
  5. GLUCOPHAGE [Concomitant]
  6. OXYCONTIN [Concomitant]
  7. MUTLIVITAMIN [Concomitant]
  8. ALOXI [Concomitant]
  9. ASPIRIN [Concomitant]

REACTIONS (7)
  - WHEEZING [None]
  - VOMITING [None]
  - HYPERHIDROSIS [None]
  - EYE MOVEMENT DISORDER [None]
  - UNRESPONSIVE TO STIMULI [None]
  - BLOOD PRESSURE IMMEASURABLE [None]
  - NAUSEA [None]
